FAERS Safety Report 20818884 (Version 1)
Quarter: 2022Q2

REPORT INFORMATION
  Report Type: Spontaneous
  Country: FR (occurrence: FR)
  Receive Date: 20220512
  Receipt Date: 20220512
  Transmission Date: 20220720
  Serious: Yes (Other)
  Sender: FDA-Public Use
  Company Number: None

PATIENT
  Age: 50 Year
  Sex: Male

DRUGS (5)
  1. LANSOPRAZOLE [Suspect]
     Active Substance: LANSOPRAZOLE
     Indication: Gastrooesophageal reflux disease
     Dosage: UNIT DOSE : 15 MG , DURATION : 237 DAYS , FREQUENCY TIME : 1 DAY
     Route: 048
     Dates: start: 20210804, end: 20220329
  2. KARDEGIC [Concomitant]
     Active Substance: ASPIRIN DL-LYSINE
     Indication: Ischaemic heart disease prophylaxis
     Dosage: POWDER FOR ORAL SOLUTION IN SACHET-DOSE , STRENGTH : 75 MG , UNIT DOSE : 75 MG , DURATION : 237 DAYS
     Route: 048
     Dates: start: 20210701
  3. ATORVASTATIN [Concomitant]
     Active Substance: ATORVASTATIN
     Indication: Dyslipidaemia
     Dosage: UNIT DOSE : 80 MG , DURATION : 237 DAYS , FREQUENCY TIME : 1 DAY
     Route: 048
     Dates: start: 20210701
  4. NITROGLYCERIN [Concomitant]
     Active Substance: NITROGLYCERIN
     Indication: Ischaemic heart disease prophylaxis
     Dosage: UNIT DOSE : 15 MG , DURATION : 237 DAYS , FREQUENCY TIME : 1 DAY
     Route: 062
     Dates: start: 20210701
  5. LOPRESSOR [Concomitant]
     Active Substance: METOPROLOL TARTRATE
     Indication: Ischaemic heart disease prophylaxis
     Dosage: UNIT DOSE : 100 MG , DURATION : 237 DAYS , FREQUENCY TIME : 1 DAY
     Route: 048
     Dates: start: 20210701

REACTIONS (1)
  - Colitis microscopic [Recovered/Resolved]

NARRATIVE: CASE EVENT DATE: 20210917
